FAERS Safety Report 8811816 (Version 2)
Quarter: 2012Q4

REPORT INFORMATION
  Report Type: 
  Country: US (occurrence: US)
  Receive Date: 20120927
  Receipt Date: 20121017
  Transmission Date: 20130627
  Serious: Yes (Death)
  Sender: FDA-Public Use
  Company Number: US-GLAXOSMITHKLINE-A0995161A

PATIENT
  Age: 39 Year
  Sex: Male

DRUGS (13)
  1. VOTRIENT [Suspect]
     Indication: MALIGNANT SOFT TISSUE NEOPLASM
     Dosage: 800MG Per day
     Route: 048
     Dates: start: 20120725
  2. LYRICA [Concomitant]
  3. UNSPECIFIED MEDICATION [Concomitant]
  4. ONDANSETRON [Concomitant]
  5. GINGER ROOT [Concomitant]
  6. SENNA CONCENTRATE + DOCUSATE SODIUM [Concomitant]
  7. CALCIUM+VITAMIN D [Concomitant]
  8. IRON [Concomitant]
  9. MULTIVITAMIN [Concomitant]
  10. METOPROLOL [Concomitant]
  11. OXYCONTIN [Concomitant]
  12. OXYCODONE [Concomitant]
  13. VITAMIN C [Concomitant]

REACTIONS (4)
  - Disease progression [Fatal]
  - Soft tissue cancer [Unknown]
  - Condition aggravated [Unknown]
  - Drug ineffective [Unknown]
